FAERS Safety Report 6199371-8 (Version None)
Quarter: 2009Q2

REPORT INFORMATION
  Report Type: 
  Country: None (occurrence: None)
  Receive Date: 20090519
  Receipt Date: 20090506
  Transmission Date: 20091009
  Serious: Yes (Other)
  Sender: FDA-Public Use
  Company Number: 2009PL000209

PATIENT
  Sex: Female

DRUGS (2)
  1. AZATHIOPRINE [Suspect]
     Indication: AUTOIMMUNE HEPATITIS
  2. PREDNISONE [Concomitant]

REACTIONS (1)
  - GUILLAIN-BARRE SYNDROME [None]
